FAERS Safety Report 5389992-4 (Version None)
Quarter: 2007Q3

REPORT INFORMATION
  Report Type: 
  Country: None (occurrence: None)
  Receive Date: 20070718
  Receipt Date: 20070713
  Transmission Date: 20080115
  Serious: Yes (Other)
  Sender: FDA-Public Use
  Company Number: CH-BRISTOL-MYERS SQUIBB COMPANY-13847132

PATIENT
  Sex: Male

DRUGS (1)
  1. ATAZANAVIR SULFATE [Suspect]
     Indication: HIV INFECTION

REACTIONS (1)
  - NEPHRITIS INTERSTITIAL [None]
